FAERS Safety Report 5392886-1 (Version None)
Quarter: 2007Q3

REPORT INFORMATION
  Report Type: 
  Country: None (occurrence: None)
  Receive Date: 20070721
  Receipt Date: 20070712
  Transmission Date: 20080115
  Serious: Yes (Other)
  Sender: FDA-Public Use
  Company Number: US-PFIZER INC-2007058198

PATIENT
  Sex: Male
  Weight: 68 kg

DRUGS (1)
  1. CELEBREX [Suspect]
     Indication: PROCEDURAL PAIN
     Dates: start: 20010601, end: 20020101

REACTIONS (1)
  - CARDIAC DISORDER [None]
